FAERS Safety Report 7644616-8 (Version None)
Quarter: 2011Q3

REPORT INFORMATION
  Report Type: 
  Country: None (occurrence: None)
  Receive Date: 20110729
  Receipt Date: 20110720
  Transmission Date: 20111222
  Serious: Yes (Hospitalization)
  Sender: FDA-Public Use
  Company Number: US-ASTRAZENECA-2011SE43348

PATIENT
  Sex: Male

DRUGS (2)
  1. CRESTOR [Suspect]
     Dosage: 80 MG GENERIC
     Route: 048
  2. CRESTOR [Suspect]
     Route: 048

REACTIONS (3)
  - MUSCULAR WEAKNESS [None]
  - MUSCLE SPASMS [None]
  - CEREBROVASCULAR ACCIDENT [None]
